FAERS Safety Report 15682988 (Version 1)
Quarter: 2018Q4

REPORT INFORMATION
  Report Type: Spontaneous
  Country: FR (occurrence: FR)
  Receive Date: 20181203
  Receipt Date: 20181203
  Transmission Date: 20190205
  Serious: Yes (Other)
  Sender: FDA-Public Use
  Company Number: FR-AUROBINDO-AUR-APL-2018-058076

PATIENT
  Age: 61 Year
  Sex: Female

DRUGS (1)
  1. PREDNISONE TABLET [Suspect]
     Active Substance: PREDNISONE
     Indication: TEMPORAL ARTERITIS
     Dosage: 30 MILLIGRAM, DAILY
     Route: 065

REACTIONS (2)
  - Cushing^s syndrome [Unknown]
  - Drug dependence [Unknown]
